FAERS Safety Report 4281317-0 (Version None)
Quarter: 2004Q1

REPORT INFORMATION
  Report Type: 
  Country: None (occurrence: None)
  Receive Date: 20040129
  Receipt Date: 20030612
  Transmission Date: 20041129
  Serious: Yes (Hospitalization)
  Sender: FDA-Public Use
  Company Number: SE-ROCHE-339968

PATIENT
  Age: 56 Year
  Sex: Male
  Weight: 54 kg

DRUGS (19)
  1. DACLIZUMAB [Suspect]
     Route: 042
     Dates: start: 20030516, end: 20030516
  2. DACLIZUMAB [Suspect]
     Route: 042
     Dates: start: 20030530, end: 20030711
  3. MYCOPHENOLATE MOFETIL [Suspect]
     Route: 048
     Dates: start: 20030516
  4. TACROLIMUS [Suspect]
     Route: 048
     Dates: start: 20030516
  5. TACROLIMUS [Suspect]
     Route: 048
  6. PREDNISOLONE [Suspect]
     Route: 048
     Dates: start: 20030516
  7. PREDNISOLONE [Suspect]
     Route: 048
  8. METOPROLOL [Concomitant]
     Route: 048
     Dates: start: 19971212
  9. FELODIPIN [Concomitant]
     Route: 048
     Dates: end: 20030612
  10. FUROSEMIDE [Concomitant]
     Route: 048
  11. PANTOPRAZOL [Concomitant]
     Route: 048
     Dates: start: 20030518
  12. GANCICLOVIR [Concomitant]
     Route: 048
     Dates: start: 20030503
  13. TRAMADOL HCL [Concomitant]
     Route: 048
     Dates: start: 20030602
  14. ATACAND [Concomitant]
     Route: 048
     Dates: start: 20020213
  15. CANDESARTAN CILEXETIL [Concomitant]
     Route: 048
     Dates: start: 20020213, end: 20030612
  16. TRAMADOL HCL [Concomitant]
     Route: 048
     Dates: start: 20030602
  17. ACID. ACETYLSALICYLIC. [Concomitant]
     Route: 048
     Dates: start: 20030612
  18. FLUCLOXACILLIN [Concomitant]
     Route: 048
     Dates: start: 20030622
  19. ATORVASTATIN [Concomitant]
     Route: 048
     Dates: start: 20031117

REACTIONS (5)
  - HERPES ZOSTER [None]
  - RENAL IMPAIRMENT [None]
  - SEPSIS [None]
  - URINARY TRACT INFECTION STAPHYLOCOCCAL [None]
  - UROSEPSIS [None]
